FAERS Safety Report 8338528-4 (Version None)
Quarter: 2012Q2

REPORT INFORMATION
  Report Type: 
  Country: None (occurrence: None)
  Receive Date: 20120504
  Receipt Date: 20120430
  Transmission Date: 20120825
  Serious: Yes (Death)
  Sender: FDA-Public Use
  Company Number: CA-ASTRAZENECA-2012SE27525

PATIENT
  Sex: Male

DRUGS (7)
  1. TRAZODONE HCL [Concomitant]
     Route: 048
  2. SEROQUEL [Suspect]
     Route: 048
  3. MULTIPLE DRUGS/TOO MANY DRUGS [Interacting]
     Route: 065
  4. FLUOXETINE [Concomitant]
  5. LORAZEPAM [Concomitant]
  6. SIX MEDICATIONS [Concomitant]
     Indication: POST-TRAUMATIC STRESS DISORDER
  7. PROPRANOLOL [Concomitant]
     Route: 048

REACTIONS (3)
  - DRUG INTERACTION [None]
  - TOXICITY TO VARIOUS AGENTS [None]
  - DYSARTHRIA [None]
